FAERS Safety Report 6292444-0 (Version None)
Quarter: 2009Q3

REPORT INFORMATION
  Report Type: 
  Country: None (occurrence: None)
  Receive Date: 20090730
  Receipt Date: 20090730
  Transmission Date: 20100115
  Serious: No
  Sender: FDA-Public Use
  Company Number: None

PATIENT
  Age: 68 Year
  Sex: Female
  Weight: 77.1115 kg

DRUGS (1)
  1. VYTORIN [Suspect]
     Dosage: 1 TABLET DAILY PO ? NOT SURE
     Route: 048
     Dates: start: 20090101, end: 20090729

REACTIONS (2)
  - CONDITION AGGRAVATED [None]
  - DEPRESSION [None]
